FAERS Safety Report 5764012-8 (Version None)
Quarter: 2008Q2

REPORT INFORMATION
  Report Type: 
  Country: None (occurrence: None)
  Receive Date: 20080609
  Receipt Date: 20080218
  Transmission Date: 20081010
  Serious: No
  Sender: FDA-Public Use
  Company Number: 002#2#2008-00069

PATIENT
  Age: 68 Year
  Sex: Female
  Weight: 63.5036 kg

DRUGS (6)
  1. NEUPRO [Suspect]
     Indication: PARKINSON'S DISEASE
     Dosage: 4MG/24H,1 IN 1 D, TRANSDERMAL ; 2MG/24H,1 IN 1 D, TRANSDERMAL
     Route: 062
     Dates: start: 20070101, end: 20070101
  2. NEUPRO [Suspect]
     Indication: PARKINSON'S DISEASE
     Dosage: 4MG/24H,1 IN 1 D, TRANSDERMAL ; 2MG/24H,1 IN 1 D, TRANSDERMAL
     Route: 062
     Dates: start: 20070911, end: 20080213
  3. SINEMET [Concomitant]
  4. MIRAPEX [Concomitant]
  5. PROPRANOLOL [Concomitant]
  6. ASCORBIC ACID [Concomitant]

REACTIONS (3)
  - APPLICATION SITE ERYTHEMA [None]
  - APPLICATION SITE PRURITUS [None]
  - APPLICATION SITE REACTION [None]
